FAERS Safety Report 21239827 (Version 1)
Quarter: 2022Q3

REPORT INFORMATION
  Report Type: Spontaneous
  Country: US (occurrence: US)
  Receive Date: 20220822
  Receipt Date: 20220822
  Transmission Date: 20221026
  Serious: Yes (Hospitalization)
  Sender: FDA-Public Use
  Company Number: US-MYLANLABS-2022M1087997

PATIENT
  Age: 32 Year
  Sex: Female

DRUGS (14)
  1. MAGNESIUM SULFATE [Suspect]
     Active Substance: MAGNESIUM SULFATE
     Indication: Hypertension
     Dosage: 6 GRAM, INTRAVENOUS BOLUS
     Route: 042
  2. MAGNESIUM SULFATE [Suspect]
     Active Substance: MAGNESIUM SULFATE
     Dosage: UNK, QH FOLLOWED BY AN INFUSION RANGING BETWEEN 1.5 TO 2.0 G/H, INTRAVENOUS INFUSION
     Route: 042
  3. FENTANYL [Suspect]
     Active Substance: FENTANYL
     Indication: Epidural analgesia
     Dosage: UNK, EPIDURAL INFUSION CONSISTING OF BUPIVACAINE WITH FENTANYL 2 MCG/ML ADMINISTERED AT 6 ML/H.
     Route: 008
  4. FUROSEMIDE [Suspect]
     Active Substance: FUROSEMIDE
     Indication: Diuretic therapy
     Dosage: 10 MILLIGRAM
     Route: 042
  5. LIDOCAINE [Suspect]
     Active Substance: LIDOCAINE
     Indication: Epidural anaesthesia
     Dosage: THE EPIDURAL CATHETER WAS BOLUSED INCREMENTALLY WITH A SOLUTION COMPRISING OF LIDOCAINE 2% WITH  SOD
     Route: 008
  6. MISOPROSTOL [Suspect]
     Active Substance: MISOPROSTOL
     Indication: Labour induction
     Dosage: 25 MICROGRAM
     Route: 060
  7. OXYTOCIN [Suspect]
     Active Substance: OXYTOCIN
     Indication: Labour induction
     Dosage: 0.24 INTERNATIONAL UNIT, QH (STARTED AT 0.24 U/H AND RANGING FROM 0.04 U/H TO 1.2 U/H) (INFUSION)
     Route: 042
  8. OXYTOCIN [Suspect]
     Active Substance: OXYTOCIN
     Indication: Uterine atony
     Dosage: 20 INTERNATIONAL UNIT (INTRAVENOUS INFUSION)
     Route: 042
  9. LABETALOL [Suspect]
     Active Substance: LABETALOL\LABETALOL HYDROCHLORIDE
     Indication: Hypertension
     Dosage: 10 MILLIGRAM
     Route: 042
  10. LACTATED RINGERS SOLUTION [Suspect]
     Active Substance: CALCIUM CHLORIDE\POTASSIUM CHLORIDE\SODIUM CHLORIDE\SODIUM LACTATE
     Indication: Fluid replacement
     Dosage: 1500 MILLILITER 3 FLUID BOLUSES (500 ML EACH) OF LACTATED RINGER^S SOLUTION OVER 4 HOURS, BOLUS
     Route: 065
  11. BUPIVACAINE [Suspect]
     Active Substance: BUPIVACAINE
     Indication: Epidural analgesia
     Dosage: EPIDURAL INFUSION CONSISTING OF 0.125% BUPIVACAINE WITH FENTANYL ADMINISTERED AT 6 ML/H.
     Route: 008
  12. SODIUM BICARBONATE [Suspect]
     Active Substance: SODIUM BICARBONATE
     Indication: Vehicle solution use
     Dosage: 1 MILLILITER, THE EPIDURAL CATHETER WAS BOLUSED INCREMENTALLY WITH A SOLUTION COMPRISING OF LIDOCAIN
     Route: 008
  13. METHYLERGONOVINE [Concomitant]
     Active Substance: METHYLERGONOVINE
     Indication: Uterine atony
     Dosage: 200 MICROGRAM
     Route: 030
  14. CARBOPROST TROMETHAMINE [Concomitant]
     Active Substance: CARBOPROST TROMETHAMINE
     Indication: Uterine atony
     Dosage: 250 MICROGRAM
     Route: 030

REACTIONS (2)
  - Drug ineffective [Unknown]
  - Maternal exposure during pregnancy [Recovered/Resolved]
